FAERS Safety Report 12428702 (Version 1)
Quarter: 2016Q2

REPORT INFORMATION
  Report Type: Spontaneous
  Country: JP (occurrence: JP)
  Receive Date: 20160602
  Receipt Date: 20160602
  Transmission Date: 20160815
  Serious: Yes (Other)
  Sender: FDA-Public Use
  Company Number: JP-WATSON-2016-11228

PATIENT
  Age: 67 Year
  Sex: Female

DRUGS (8)
  1. PREDNISOLONE (UNKNOWN) [Suspect]
     Active Substance: PREDNISOLONE
     Indication: POLYMYALGIA RHEUMATICA
     Dosage: 5 MG, DAILY
     Route: 048
  2. PREDNISOLONE (UNKNOWN) [Suspect]
     Active Substance: PREDNISOLONE
     Dosage: 12.5 MG, DAILY
     Route: 048
  3. PREDNISOLONE (UNKNOWN) [Suspect]
     Active Substance: PREDNISOLONE
     Dosage: 10 MG, DAILY
     Route: 048
  4. PREDNISOLONE (UNKNOWN) [Suspect]
     Active Substance: PREDNISOLONE
     Dosage: 15 MG, DAILY
     Route: 048
  5. PREDNISOLONE (UNKNOWN) [Suspect]
     Active Substance: PREDNISOLONE
     Dosage: 15 MG, DAILY
     Route: 048
  6. PREDNISOLONE (UNKNOWN) [Suspect]
     Active Substance: PREDNISOLONE
     Dosage: 7.5 MG, DAILY
     Route: 048
  7. PREDNISOLONE (UNKNOWN) [Suspect]
     Active Substance: PREDNISOLONE
     Dosage: 10 MG, DAILY
     Route: 065
  8. SULFASALAZINE (WATSON LABORATORIES) [Suspect]
     Active Substance: SULFASALAZINE
     Indication: POLYMYALGIA RHEUMATICA
     Dosage: 1 G, DAILY
     Route: 065

REACTIONS (2)
  - Hepatic enzyme abnormal [Unknown]
  - Polymyalgia rheumatica [Recovered/Resolved]
